FAERS Safety Report 5313910-8 (Version None)
Quarter: 2007Q2

REPORT INFORMATION
  Report Type: 
  Country: None (occurrence: None)
  Receive Date: 20070501
  Receipt Date: 20070428
  Transmission Date: 20071010
  Serious: Yes (Death)
  Sender: FDA-Public Use
  Company Number: 2007AP02332

PATIENT
  Age: 60 Year
  Sex: Male

DRUGS (4)
  1. IRESSA [Suspect]
     Indication: LUNG ADENOCARCINOMA
     Route: 048
     Dates: start: 20070301
  2. CISPLATIN [Suspect]
     Indication: LUNG ADENOCARCINOMA
     Route: 038
  3. UNSPECIFIC HYPOGLYCEMIC AGENT [Concomitant]
     Indication: DIABETES MELLITUS
  4. UNSPECIFIC HYPOTENSIVE AGENT [Concomitant]
     Indication: HYPERTENSION

REACTIONS (1)
  - RENAL FAILURE ACUTE [None]
